FAERS Safety Report 7867152-2 (Version None)
Quarter: 2011Q4

REPORT INFORMATION
  Report Type: 
  Country: None (occurrence: None)
  Receive Date: 20111028
  Receipt Date: 20111025
  Transmission Date: 20120403
  Serious: Yes (Other)
  Sender: FDA-Public Use
  Company Number: US-JNJFOC-20101103084

PATIENT
  Sex: Female

DRUGS (5)
  1. DOXIL [Suspect]
     Indication: OVARIAN EPITHELIAL CANCER RECURRENT
     Dosage: UNSPECIFIED DOSE EVERY 4-7 WEEKS FOR 11 YEARS;  CUMULATIVE DOSE 2320 MG/M2
     Route: 042
     Dates: start: 19980603, end: 20081111
  2. DOXIL [Suspect]
     Indication: OVARIAN CANCER METASTATIC
     Dosage: UNSPECIFIED DOSE EVERY 4-7 WEEKS FOR 11 YEARS;  CUMULATIVE DOSE 2320 MG/M2
     Route: 042
     Dates: start: 19980603, end: 20081111
  3. NORVASC [Concomitant]
     Route: 065
     Dates: start: 20050601
  4. CALCIUM WITH VITAMIN D [Concomitant]
     Route: 065
  5. LOVAZA [Concomitant]
     Route: 065

REACTIONS (1)
  - TONGUE DYSPLASIA [None]
